FAERS Safety Report 7431940-7 (Version None)
Quarter: 2011Q2

REPORT INFORMATION
  Report Type: 
  Country: None (occurrence: None)
  Receive Date: 20110422
  Receipt Date: 20110210
  Transmission Date: 20111010
  Serious: Yes (Other)
  Sender: FDA-Public Use
  Company Number: US-BRISTOL-MYERS SQUIBB COMPANY-15543614

PATIENT
  Sex: Male

DRUGS (3)
  1. CARBOPLATIN [Suspect]
     Indication: NEOPLASM MALIGNANT
  2. TAXOL [Suspect]
     Indication: NEOPLASM MALIGNANT
  3. ALIMTA [Suspect]
     Dosage: VIAL

REACTIONS (2)
  - PANCYTOPENIA [None]
  - NEOPLASM MALIGNANT [None]
